FAERS Safety Report 8561899-0 (Version None)
Quarter: 2012Q3

REPORT INFORMATION
  Report Type: 
  Country: None (occurrence: None)
  Receive Date: 20120802
  Receipt Date: 20120724
  Transmission Date: 20120928
  Serious: No
  Sender: FDA-Public Use
  Company Number: US-AMGEN-USASP2011064208

PATIENT
  Sex: Female

DRUGS (6)
  1. ENBREL [Suspect]
     Indication: PSORIATIC ARTHROPATHY
  2. ENBREL [Suspect]
     Indication: OSTEOARTHRITIS
  3. ENBREL [Suspect]
     Indication: OSTEOPOROSIS
  4. ENBREL [Suspect]
     Indication: RHEUMATOID ARTHRITIS
     Dosage: 50 MG, QWK
     Dates: start: 19990101
  5. TREXALL [Concomitant]
     Dosage: 6 MG, QWK
     Dates: start: 20090101
  6. ENBREL [Suspect]
     Indication: PSORIASIS

REACTIONS (5)
  - CYSTITIS [None]
  - PSORIASIS [None]
  - THERAPEUTIC RESPONSE DECREASED [None]
  - KIDNEY INFECTION [None]
  - DRUG HYPERSENSITIVITY [None]
